FAERS Safety Report 10401532 (Version 2)
Quarter: 2014Q3

REPORT INFORMATION
  Report Type: Spontaneous
  Country: AT (occurrence: None)
  Receive Date: 20140819
  Receipt Date: 20140930
  Transmission Date: 20150326
  Serious: Yes (Hospitalization, Other)
  Sender: FDA-Public Use
  Company Number: 2014-20152

PATIENT
  Age: 74 Year
  Sex: Female

DRUGS (1)
  1. EYLEA [Suspect]
     Active Substance: AFLIBERCEPT
     Indication: AGE-RELATED MACULAR DEGENERATION
     Route: 031
     Dates: start: 20140205

REACTIONS (6)
  - Anterior chamber disorder [None]
  - Depression [None]
  - Allergy to chemicals [None]
  - Vitreous haemorrhage [None]
  - Visual impairment [None]
  - Eye irritation [None]

NARRATIVE: CASE EVENT DATE: 20140307
